FAERS Safety Report 19975069 (Version 1)
Quarter: 2021Q4

REPORT INFORMATION
  Report Type: Spontaneous
  Country: US (occurrence: US)
  Receive Date: 20211020
  Receipt Date: 20211020
  Transmission Date: 20220303
  Serious: No
  Sender: FDA-Public Use
  Company Number: US-ALLERGAN-2101546US

PATIENT
  Age: 82 Year
  Sex: Male

DRUGS (1)
  1. LINZESS [Suspect]
     Active Substance: LINACLOTIDE
     Indication: Constipation
     Dosage: 1 DF
     Route: 048

REACTIONS (3)
  - Asthenia [Recovering/Resolving]
  - Fall [Recovered/Resolved]
  - Product communication issue [Unknown]
